FAERS Safety Report 9200783 (Version 1)
Quarter: 2013Q1

REPORT INFORMATION
  Report Type: Spontaneous
  Country: US (occurrence: None)
  Receive Date: 20130328
  Receipt Date: 20130328
  Transmission Date: 20140127
  Serious: Yes (Disabling)
  Sender: FDA-Public Use
  Company Number: None

PATIENT
  Age: 73 Year
  Sex: Female
  Weight: 62.14 kg

DRUGS (1)
  1. LEVAQUIN [Suspect]

REACTIONS (2)
  - Pain in extremity [None]
  - Arthralgia [None]
